FAERS Safety Report 8204412-X (Version None)
Quarter: 2012Q1

REPORT INFORMATION
  Report Type: 
  Country: None (occurrence: None)
  Receive Date: 20120313
  Receipt Date: 20120313
  Transmission Date: 20120608
  Serious: Yes (Other)
  Sender: FDA-Public Use
  Company Number: None

PATIENT
  Age: 57 Year
  Sex: Female

DRUGS (2)
  1. METOPROLOL SUCCINATE [Concomitant]
     Indication: HYPERTENSION
     Dosage: 100 MG
     Route: 048
  2. VERAPAMIL EXTENDED-RELEASE [Suspect]
     Indication: HYPERTENSION
     Dosage: 240 MG
     Route: 048

REACTIONS (4)
  - BLOOD PRESSURE DECREASED [None]
  - ASTHENIA [None]
  - HEART RATE DECREASED [None]
  - DIZZINESS [None]
